FAERS Safety Report 18259803 (Version 1)
Quarter: 2020Q3

REPORT INFORMATION
  Report Type: Report from Study
  Country: None (occurrence: AR)
  Receive Date: 20200912
  Receipt Date: 20200912
  Transmission Date: 20201103
  Serious: Yes (Hospitalization, Other)
  Sender: FDA-Public Use
  Company Number: AR-ABBVIE-19K-007-2727165-00

PATIENT
  Age: 56 Year
  Sex: Female

DRUGS (1)
  1. HUMIRA [Suspect]
     Active Substance: ADALIMUMAB
     Indication: RHEUMATOID ARTHRITIS
     Route: 058
     Dates: start: 20180701, end: 2020

REACTIONS (9)
  - Kidney infection [Recovering/Resolving]
  - Headache [Unknown]
  - Blood triglycerides increased [Not Recovered/Not Resolved]
  - Renal neoplasm [Not Recovered/Not Resolved]
  - Nasopharyngitis [Not Recovered/Not Resolved]
  - Blood cholesterol increased [Not Recovered/Not Resolved]
  - Nephrolithiasis [Unknown]
  - Renal cyst [Not Recovered/Not Resolved]
  - Urinary tract infection [Unknown]

NARRATIVE: CASE EVENT DATE: 201902
